FAERS Safety Report 13012981 (Version 1)
Quarter: 2016Q4

REPORT INFORMATION
  Report Type: Spontaneous
  Country: US (occurrence: US)
  Receive Date: 20161208
  Receipt Date: 20161208
  Transmission Date: 20170207
  Serious: Yes (Life-Threatening, Hospitalization, Other)
  Sender: FDA-Public Use
  Company Number: None

PATIENT
  Age: 41 Year
  Sex: Female
  Weight: 91.7 kg

DRUGS (7)
  1. ORSYTHIA [Suspect]
     Active Substance: ETHINYL ESTRADIOL\LEVONORGESTREL
     Indication: CONTRACEPTION
     Route: 048
     Dates: start: 20160720, end: 20160818
  2. OMEPRAZOLE. [Concomitant]
     Active Substance: OMEPRAZOLE
  3. ALPRAZOLAM. [Concomitant]
     Active Substance: ALPRAZOLAM
  4. PREDNISONE. [Concomitant]
     Active Substance: PREDNISONE
  5. AMPHETAMINE [Concomitant]
     Active Substance: AMPHETAMINE
  6. CITALOPRAM [Concomitant]
     Active Substance: CITALOPRAM HYDROBROMIDE
  7. AZITHROMYCIN ANHYDROUS. [Concomitant]
     Active Substance: AZITHROMYCIN ANHYDROUS

REACTIONS (5)
  - Echocardiogram abnormal [None]
  - Ejection fraction decreased [None]
  - Chest pain [None]
  - Dyspnoea [None]
  - Intracardiac thrombus [None]

NARRATIVE: CASE EVENT DATE: 20160818
